FAERS Safety Report 12295100 (Version 1)
Quarter: 2016Q2

REPORT INFORMATION
  Report Type: Spontaneous
  Country: AU (occurrence: AU)
  Receive Date: 20160422
  Receipt Date: 20160422
  Transmission Date: 20160815
  Serious: Yes (Other)
  Sender: FDA-Public Use
  Company Number: AU-BAYER-2016-051362

PATIENT
  Age: 30 Year
  Sex: Male

DRUGS (1)
  1. AVELOX [Suspect]
     Active Substance: MOXIFLOXACIN HYDROCHLORIDE
     Indication: URINARY TRACT INFECTION ENTEROCOCCAL
     Dosage: 400 MG, UNK
     Dates: start: 20160310

REACTIONS (5)
  - Penile blister [None]
  - Panic attack [None]
  - Gait disturbance [None]
  - Genital rash [None]
  - Arthralgia [None]

NARRATIVE: CASE EVENT DATE: 20160310
